FAERS Safety Report 20589190 (Version 1)
Quarter: 2022Q1

REPORT INFORMATION
  Report Type: Spontaneous
  Country: CA (occurrence: None)
  Receive Date: 20220314
  Receipt Date: 20220314
  Transmission Date: 20220423
  Serious: Yes (Other)
  Sender: FDA-Public Use
  Company Number: CA-PFIZER INC-202200383142

PATIENT
  Age: 56 Year
  Sex: Male

DRUGS (1)
  1. METHOTREXATE [Suspect]
     Active Substance: METHOTREXATE
     Indication: Crohn^s disease
     Route: 065

REACTIONS (7)
  - Haematochezia [Unknown]
  - Rectal haemorrhage [Unknown]
  - Product use in unapproved indication [Unknown]
  - Drug intolerance [Unknown]
  - Dizziness [Unknown]
  - Diarrhoea [Unknown]
  - Nausea [Not Recovered/Not Resolved]
